FAERS Safety Report 5128084-6 (Version None)
Quarter: 2006Q4

REPORT INFORMATION
  Report Type: 
  Country: None (occurrence: None)
  Receive Date: 20061010
  Receipt Date: 20060929
  Transmission Date: 20070319
  Serious: Yes (Hospitalization)
  Sender: FDA-Public Use
  Company Number: HQWYE403729SEP06

PATIENT
  Age: 81 Year
  Sex: Male

DRUGS (11)
  1. CORDARONE [Suspect]
     Dosage: 100 MG 1X PER 1 DAY
     Route: 048
     Dates: start: 20041203, end: 20050101
  2. AMIODARONE HCL [Suspect]
     Route: 042
     Dates: start: 20050101, end: 20051116
  3. SELOKEN ZOC (METOPROLOL SUCCINATE) [Concomitant]
  4. SALURES (BENDROFLUMETHIAZIDE) [Concomitant]
  5. BEHEPAN (CYANOCOBALAMIN) [Concomitant]
  6. FUROSEMIDE [Concomitant]
  7. ENALAPRIL MALEATE [Concomitant]
  8. IMDUR [Concomitant]
  9. PLAVIX [Concomitant]
  10. PANTOPRAZOLE SODIUM [Concomitant]
  11. NOVOMIX (INSULIN ASPART) [Concomitant]

REACTIONS (8)
  - CONDITION AGGRAVATED [None]
  - DYSPNOEA [None]
  - FLUID RETENTION [None]
  - PULMONARY FIBROSIS [None]
  - PULMONARY OEDEMA [None]
  - TOTAL LUNG CAPACITY DECREASED [None]
  - VENTRICULAR TACHYCARDIA [None]
  - WEIGHT DECREASED [None]
